FAERS Safety Report 20591441 (Version 1)
Quarter: 2022Q1

REPORT INFORMATION
  Report Type: Report from Study
  Country: IN (occurrence: IN)
  Receive Date: 20220314
  Receipt Date: 20220314
  Transmission Date: 20220424
  Serious: Yes (Other)
  Sender: FDA-Public Use
  Company Number: IN-MYLANLABS-2022M1019230

PATIENT

DRUGS (5)
  1. DOXORUBICIN [Suspect]
     Active Substance: DOXORUBICIN
     Indication: High-grade B-cell lymphoma
     Dosage: UNK, CYCLE (EVERY 21 DAYS FOR SIX CYCLES, AS A PART OF DAEPOCH REGIMEN)
     Route: 065
  2. ETOPOSIDE [Suspect]
     Active Substance: ETOPOSIDE
     Indication: High-grade B-cell lymphoma
     Dosage: UNK, CYCLE (EVERY 21 DAYS FOR SIX CYCLES, AS A PART OF DAEPOCH REGIMEN)
     Route: 065
  3. PREDNISONE [Suspect]
     Active Substance: PREDNISONE
     Indication: High-grade B-cell lymphoma
     Dosage: UNK, CYCLE (EVERY 21 DAYS FOR SIX CYCLES, AS A PART OF DAEPOCH REGIMEN)
     Route: 065
  4. VINCRISTINE [Suspect]
     Active Substance: VINCRISTINE
     Indication: High-grade B-cell lymphoma
     Dosage: UNK, CYCLE (EVERY 21 DAYS FOR SIX CYCLES, AS A PART OF DAEPOCH REGIMEN)
     Route: 065
  5. CYCLOPHOSPHAMIDE [Suspect]
     Active Substance: CYCLOPHOSPHAMIDE
     Indication: High-grade B-cell lymphoma
     Dosage: UNK, CYCLE (EVERY 21 DAYS FOR SIX CYCLES, AS A PART OF DAEPOCH REGIMEN)
     Route: 065

REACTIONS (1)
  - Cardiac disorder [Unknown]
